FAERS Safety Report 9491770 (Version 1)
Quarter: 2013Q3

REPORT INFORMATION
  Report Type: Not Available
  Country: US (occurrence: US)
  Receive Date: 20130919
  Receipt Date: 20130919
  Transmission Date: 20140515
  Serious: No
  Sender: FDA-Public Use
  Company Number: US-LUNDBECK-DKLU1083116

PATIENT
  Sex: Female

DRUGS (1)
  1. SABRIL (TABLET) [Suspect]
     Indication: COMPLEX PARTIAL SEIZURES
     Dosage: 2 TABLETS
     Route: 048
     Dates: start: 20100422

REACTIONS (1)
  - Incorrect dose administered [Recovered/Resolved]
